FAERS Safety Report 7007096-1 (Version None)
Quarter: 2010Q3

REPORT INFORMATION
  Report Type: 
  Country: None (occurrence: None)
  Receive Date: 20100922
  Receipt Date: 20100909
  Transmission Date: 20110219
  Serious: Yes (Hospitalization)
  Sender: FDA-Public Use
  Company Number: US-ELI_LILLY_AND_COMPANY-US201009003225

PATIENT
  Sex: Female
  Weight: 55 kg

DRUGS (4)
  1. PRASUGREL HYDROCHLORIDE [Suspect]
     Indication: ACUTE CORONARY SYNDROME
     Dosage: 5 MG, DAILY (1/D)
     Dates: start: 20100825
  2. ASPIRIN [Concomitant]
     Indication: CORONARY ARTERY DISEASE
     Dosage: 81 MG, DAILY (1/D)
     Route: 048
     Dates: start: 20100810
  3. CLONIDINE [Concomitant]
     Indication: HYPERTENSION
     Dosage: 0.3 MG, AS NEEDED
     Route: 048
  4. BISOPROLOL [Concomitant]
     Indication: HYPERTENSION
     Dosage: 5 MG, 2/D
     Route: 048

REACTIONS (1)
  - ABDOMINAL PAIN [None]
